FAERS Safety Report 7982301-3 (Version None)
Quarter: 2011Q4

REPORT INFORMATION
  Report Type: 
  Country: None (occurrence: None)
  Receive Date: 20111214
  Receipt Date: 20111214
  Transmission Date: 20120403
  Serious: Yes (Other)
  Sender: FDA-Public Use
  Company Number: None

PATIENT
  Age: 62 Year
  Sex: Female
  Weight: 82 kg

DRUGS (2)
  1. AVEENO SKIN RELIEF BODY WASH FRAGRANCE FR [Suspect]
     Indication: THERAPEUTIC SKIN CARE TOPICAL
     Dosage: TINY BIT, TWICE A DAY, TOPICAL
     Route: 061
     Dates: start: 20111122, end: 20111123
  2. NASONEX [Concomitant]

REACTIONS (4)
  - ERYTHEMA [None]
  - PRURITUS [None]
  - THROAT TIGHTNESS [None]
  - RHINORRHOEA [None]
